FAERS Safety Report 5207511-X (Version None)
Quarter: 2007Q1

REPORT INFORMATION
  Report Type: 
  Country: None (occurrence: None)
  Receive Date: 20070112
  Receipt Date: 20070109
  Transmission Date: 20070707
  Serious: Yes (Other)
  Sender: FDA-Public Use
  Company Number: GR-BRISTOL-MYERS SQUIBB COMPANY-13509807

PATIENT
  Age: 39 Year
  Sex: Female

DRUGS (3)
  1. REYATAZ [Suspect]
     Indication: ACQUIRED IMMUNODEFICIENCY SYNDROME
     Dosage: THERAPY DISCONTINUED IN JUL=2005, RESTARTED 20-DAYS LATER (JUL/AUG-2005) AND AGAIN DISCONTINUED.
     Dates: start: 20050501
  2. ZERIT [Concomitant]
     Dosage: THERAPY DISCONTINUED IN JUL-2005, RESTARTED 20-DAYS LATER (JUL/AUG-2005) AND AGAIN DISCONTINUED.
     Dates: start: 20050501
  3. EPIVIR [Concomitant]
     Dosage: THERAPY DISCONTINUED IN JUL-2005, RESTARTED 20-DAYS LATER (JUL/AUG-2005) AND AGAIN DISCONTINUED.
     Dates: start: 20050501

REACTIONS (1)
  - VAGINAL HAEMORRHAGE [None]
